FAERS Safety Report 6245726-2 (Version None)
Quarter: 2009Q2

REPORT INFORMATION
  Report Type: 
  Country: None (occurrence: None)
  Receive Date: 20090625
  Receipt Date: 20090616
  Transmission Date: 20091009
  Serious: Yes (Hospitalization)
  Sender: FDA-Public Use
  Company Number: IT-ABBOTT-09P-083-0580191-00

PATIENT
  Sex: Male

DRUGS (9)
  1. CLARITHROMYCIN [Suspect]
     Indication: HYPERPYREXIA
     Dates: start: 20090521, end: 20090525
  2. CLARITHROMYCIN [Suspect]
     Indication: BRONCHOPNEUMONIA
  3. COUMADIN [Suspect]
     Indication: ATRIAL FIBRILLATION
     Dosage: BASED ON INR RESULTS
  4. NITROGLICERINA [Concomitant]
     Indication: DRUG USE FOR UNKNOWN INDICATION
     Route: 062
     Dates: start: 20040101
  5. CONGESCON [Concomitant]
     Indication: DRUG USE FOR UNKNOWN INDICATION
     Route: 048
     Dates: start: 20080101
  6. SPIRIVA [Concomitant]
     Indication: DRUG USE FOR UNKNOWN INDICATION
     Dosage: 1 PUFF/DAY
     Dates: start: 20070101
  7. CORDARONE [Concomitant]
     Indication: DRUG USE FOR UNKNOWN INDICATION
     Dates: start: 20040101
  8. TOTALIP [Concomitant]
     Indication: DRUG USE FOR UNKNOWN INDICATION
     Dates: start: 20040101
  9. GLUCOPHAGE [Concomitant]
     Indication: DRUG USE FOR UNKNOWN INDICATION
     Dosage: 1/2 TABLET X3
     Dates: start: 20060101

REACTIONS (4)
  - ACUTE HEPATIC FAILURE [None]
  - EPISTAXIS [None]
  - HEPATIC FAILURE [None]
  - RENAL FAILURE ACUTE [None]
